FAERS Safety Report 6677438-5 (Version None)
Quarter: 2010Q2

REPORT INFORMATION
  Report Type: 
  Country: None (occurrence: None)
  Receive Date: 20100412
  Receipt Date: 20100409
  Transmission Date: 20101027
  Serious: Yes (Congenital Anomaly)
  Sender: FDA-Public Use
  Company Number: A0679863A

PATIENT
  Sex: Female

DRUGS (3)
  1. PAXIL CR [Suspect]
     Indication: ANXIETY
     Dosage: 25MG PER DAY
     Dates: start: 20040111, end: 20050407
  2. PAROXETINE HCL [Suspect]
     Indication: ANXIETY
     Dosage: 30MG PER DAY
     Dates: start: 20050407, end: 20060101
  3. VITAMIN TAB [Concomitant]

REACTIONS (4)
  - ABORTION SPONTANEOUS [None]
  - CARDIAC DISORDER [None]
  - DRUG EXPOSURE DURING PREGNANCY [None]
  - MULTIPLE CONGENITAL ABNORMALITIES [None]
